FAERS Safety Report 15694988 (Version 1)
Quarter: 2018Q4

REPORT INFORMATION
  Report Type: Spontaneous
  Country: US (occurrence: US)
  Receive Date: 20181206
  Receipt Date: 20181206
  Transmission Date: 20190205
  Serious: No
  Sender: FDA-Public Use
  Company Number: US-ENDO PHARMACEUTICALS INC-2018-025930

PATIENT
  Age: 56 Year
  Sex: Male
  Weight: 81.63 kg

DRUGS (6)
  1. XIAFLEX [Suspect]
     Active Substance: COLLAGENASE CLOSTRIDIUM HISTOLYTICUM
     Dosage: 1ST CYCLE, 2 INJECTIONS IN THE PENIS
     Route: 026
     Dates: start: 201711
  2. XIAFLEX [Suspect]
     Active Substance: COLLAGENASE CLOSTRIDIUM HISTOLYTICUM
     Indication: PEYRONIE^S DISEASE
     Dosage: 3RD CYCLE, 1 INJECTION IN THE PENIS
     Route: 026
     Dates: start: 20180212, end: 20180212
  3. XIAFLEX [Suspect]
     Active Substance: COLLAGENASE CLOSTRIDIUM HISTOLYTICUM
     Dosage: 3RD CYCLE, 1 INJECTION IN THE PENIS
     Route: 026
     Dates: start: 20180208
  4. XIAFLEX [Suspect]
     Active Substance: COLLAGENASE CLOSTRIDIUM HISTOLYTICUM
     Dosage: 2ND CYCLE, 1 INJECTION IN THE PENIS
     Route: 026
     Dates: start: 20171226
  5. COUMADIN [Concomitant]
     Active Substance: WARFARIN SODIUM
     Indication: PRODUCT USED FOR UNKNOWN INDICATION
  6. XIAFLEX [Suspect]
     Active Substance: COLLAGENASE CLOSTRIDIUM HISTOLYTICUM
     Dosage: 2ND CYCLE, 1 INJECTION IN THE PENIS
     Route: 026
     Dates: start: 20171222

REACTIONS (6)
  - Painful erection [Unknown]
  - Penile swelling [Unknown]
  - Penile contusion [Recovering/Resolving]
  - Contusion [Recovering/Resolving]
  - Penile pain [Unknown]
  - Genital contusion [Recovering/Resolving]

NARRATIVE: CASE EVENT DATE: 201802
